FAERS Safety Report 14886066 (Version 4)
Quarter: 2020Q3

REPORT INFORMATION
  Report Type: Other
  Country: US (occurrence: US)
  Receive Date: 20180512
  Receipt Date: 20200821
  Transmission Date: 20201102
  Serious: Yes (Other)
  Sender: FDA-Public Use
  Company Number: US-ROCHE-2032493

PATIENT
  Age: 63 Year
  Sex: Female
  Weight: 95.34 kg

DRUGS (7)
  1. BENADRYL [Concomitant]
     Active Substance: DIPHENHYDRAMINE HYDROCHLORIDE
     Route: 048
  2. OCREVUS [Suspect]
     Active Substance: OCRELIZUMAB
     Indication: RELAPSING-REMITTING MULTIPLE SCLEROSIS
     Dosage: 01/DEC/2017, 01/JUN/2018, 02/NOV/2018, 08/APR/2019, 09/SEP/2019 AND 10/FEB/2020
     Route: 042
     Dates: start: 20171117
  3. ZYRTEC (UNITED STATES) [Concomitant]
     Dosage: 3 DAYS PRIOR TO THE INFUSION
  4. ALEVE [Suspect]
     Active Substance: NAPROXEN SODIUM
     Indication: MYALGIA
     Route: 065
  5. BENADRYL [Concomitant]
     Active Substance: DIPHENHYDRAMINE HYDROCHLORIDE
  6. PRILOSEC [Concomitant]
     Active Substance: OMEPRAZOLE MAGNESIUM
     Dosage: TWO DAYS PRIOR TO THE INFUSION
  7. PREDNISONE. [Concomitant]
     Active Substance: PREDNISONE
     Dosage: TWO DAYS PRIOR TO THE INFUSION

REACTIONS (24)
  - Rash [Unknown]
  - Visual impairment [Unknown]
  - Feeling abnormal [Recovered/Resolved]
  - Myalgia [Recovered/Resolved]
  - Pruritus [Recovered/Resolved]
  - Arthralgia [Recovered/Resolved]
  - Pain [Recovered/Resolved]
  - Pain [Recovered/Resolved]
  - Fatigue [Recovered/Resolved]
  - Pain in extremity [Recovered/Resolved]
  - Drug ineffective [Unknown]
  - Formication [Recovered/Resolved]
  - Dysphonia [Recovered/Resolved]
  - Nasopharyngitis [Recovered/Resolved]
  - Illness [Unknown]
  - Abdominal discomfort [Recovered/Resolved]
  - Multiple sclerosis relapse [Unknown]
  - Nasal congestion [Unknown]
  - Herpes zoster [Recovered/Resolved]
  - Muscle twitching [Unknown]
  - Rash macular [Recovered/Resolved]
  - Insomnia [Unknown]
  - Dyspnoea [Unknown]
  - Influenza like illness [Recovered/Resolved]

NARRATIVE: CASE EVENT DATE: 20171117
